FAERS Safety Report 8074287-0 (Version None)
Quarter: 2012Q1

REPORT INFORMATION
  Report Type: 
  Country: None (occurrence: None)
  Receive Date: 20120126
  Receipt Date: 20120119
  Transmission Date: 20120608
  Serious: Yes (Hospitalization)
  Sender: FDA-Public Use
  Company Number: US-US-EMD SERONO, INC.-7106503

PATIENT
  Sex: Male
  Weight: 84 kg

DRUGS (11)
  1. ZESTORETIC [Concomitant]
  2. CELEXA [Concomitant]
  3. BACLOFEN [Concomitant]
  4. PROVIGIL [Concomitant]
     Indication: FATIGUE
  5. AMANTADINE HCL [Concomitant]
     Indication: FATIGUE
  6. REQUIP [Concomitant]
  7. HYDROGEN PEROXIDE SOLUTION [Concomitant]
     Indication: FATIGUE
     Dosage: 5 DROPS IN 8 OZ GLASS OF WATER
  8. ZANAFLEX [Concomitant]
  9. AMBIEN [Concomitant]
  10. REBIF [Suspect]
     Indication: MULTIPLE SCLEROSIS
     Route: 058
     Dates: start: 20080902
  11. NEURONTIN [Concomitant]

REACTIONS (2)
  - MULTIPLE SCLEROSIS RELAPSE [None]
  - URINARY RETENTION [None]
